FAERS Safety Report 9364740 (Version 1)
Quarter: 2013Q2

REPORT INFORMATION
  Report Type: Spontaneous
  Country: US (occurrence: US)
  Receive Date: 20130624
  Receipt Date: 20130624
  Transmission Date: 20140414
  Serious: Yes (Hospitalization)
  Sender: FDA-Public Use
  Company Number: US-B.I. PHARMACEUTICALS,INC./RIDGEFIELD-2013-BI-17581BP

PATIENT
  Age: 34 Year
  Sex: Male
  Weight: 68 kg

DRUGS (7)
  1. AGGRENOX [Suspect]
     Indication: CEREBROVASCULAR ACCIDENT PROPHYLAXIS
     Dosage: STRENGTH: 25 MG / 200 MG; DAILY DOSE: 50 MG/ 400 MG
     Route: 048
     Dates: start: 201206
  2. GABAPENTIN [Concomitant]
     Route: 048
  3. MS CONTIN [Concomitant]
     Indication: BACK PAIN
     Dosage: 60 MG
     Route: 048
  4. CYMBALTA [Concomitant]
     Dosage: 60 MG
     Route: 048
  5. PRAVASTATIN [Concomitant]
     Indication: BLOOD CHOLESTEROL INCREASED
     Route: 048
  6. BACLOFEN [Concomitant]
     Route: 048
  7. MECLIZINE [Concomitant]
     Indication: DIZZINESS
     Route: 048

REACTIONS (5)
  - Transient ischaemic attack [Recovered/Resolved]
  - Transient ischaemic attack [Recovered/Resolved]
  - Loss of consciousness [Recovered/Resolved]
  - Loss of consciousness [Recovered/Resolved]
  - Loss of consciousness [Recovered/Resolved]
